FAERS Safety Report 18542454 (Version 2)
Quarter: 2021Q1

REPORT INFORMATION
  Report Type: Spontaneous
  Country: US (occurrence: US)
  Receive Date: 20201125
  Receipt Date: 20210209
  Transmission Date: 20210419
  Serious: Yes (Other)
  Sender: FDA-Public Use
  Company Number: US-ELI_LILLY_AND_COMPANY-US202011009912

PATIENT
  Sex: Male

DRUGS (1)
  1. TRULICITY [Suspect]
     Active Substance: DULAGLUTIDE
     Indication: DIABETES MELLITUS
     Dosage: 1.5 MG, WEEKLY (1/W)
     Route: 058
     Dates: start: 202002

REACTIONS (7)
  - Gout [Unknown]
  - Sleep apnoea syndrome [Unknown]
  - Renal failure [Unknown]
  - Product storage error [Unknown]
  - Hypertension [Unknown]
  - Injection site pain [Unknown]
  - Abdominal discomfort [Unknown]
